FAERS Safety Report 15768380 (Version 1)
Quarter: 2018Q4

REPORT INFORMATION
  Report Type: Report from Study
  Country: US (occurrence: US)
  Receive Date: 20181227
  Receipt Date: 20181227
  Transmission Date: 20190205
  Serious: Yes (Hospitalization)
  Sender: FDA-Public Use
  Company Number: US-EXELIXIS-CABO-18017852

PATIENT
  Age: 61 Year
  Sex: Male

DRUGS (10)
  1. LISINOPRIL. [Concomitant]
     Active Substance: LISINOPRIL
  2. FISH OIL [Concomitant]
     Active Substance: FISH OIL
  3. OPDIVO [Concomitant]
     Active Substance: NIVOLUMAB
  4. METOPROLOL. [Concomitant]
     Active Substance: METOPROLOL
  5. VITAMIN D3 [Concomitant]
     Active Substance: CHOLECALCIFEROL
  6. OXYCODONE [Concomitant]
     Active Substance: OXYCODONE
  7. CABOMETYX [Suspect]
     Active Substance: CABOZANTINIB S-MALATE
     Dosage: 60 MG, QD
     Route: 048
     Dates: start: 201812
  8. YERVOY [Concomitant]
     Active Substance: IPILIMUMAB
  9. ASPIRIN. [Concomitant]
     Active Substance: ASPIRIN
  10. CABOMETYX [Suspect]
     Active Substance: CABOZANTINIB S-MALATE
     Indication: RENAL CANCER
     Dosage: 60 MG, QD
     Route: 048
     Dates: start: 20181114, end: 201812

REACTIONS (1)
  - Abscess [Not Recovered/Not Resolved]

NARRATIVE: CASE EVENT DATE: 20181201
